FAERS Safety Report 21307738 (Version 1)
Quarter: 2022Q3

REPORT INFORMATION
  Report Type: Spontaneous
  Country: UA (occurrence: UA)
  Receive Date: 20220908
  Receipt Date: 20220908
  Transmission Date: 20221027
  Serious: Yes (Life-Threatening, Other)
  Sender: FDA-Public Use
  Company Number: UA-MYLANLABS-2022M1092024

PATIENT
  Age: 67 Year
  Sex: Female

DRUGS (1)
  1. DOLUTEGRAVIR\LAMIVUDINE\TENOFOVIR DISOPROXIL FUMARATE [Suspect]
     Active Substance: DOLUTEGRAVIR\LAMIVUDINE\TENOFOVIR DISOPROXIL FUMARATE
     Indication: HIV infection
     Dosage: 300 MILLIGRAM, QD (1/1 DAY(S))
     Route: 048
     Dates: start: 20190219, end: 20220801

REACTIONS (1)
  - Nephropathy [Recovering/Resolving]

NARRATIVE: CASE EVENT DATE: 20220728
